FAERS Safety Report 11200652 (Version 5)
Quarter: 2015Q4

REPORT INFORMATION
  Report Type: Spontaneous
  Country: JP (occurrence: JP)
  Receive Date: 20150618
  Receipt Date: 20151125
  Transmission Date: 20160304
  Serious: Yes (Hospitalization)
  Sender: FDA-Public Use
  Company Number: JP-PFIZER INC-2015199656

PATIENT
  Age: 47 Year
  Sex: Female
  Weight: 63 kg

DRUGS (8)
  1. CELECOX [Concomitant]
     Active Substance: CELECOXIB
     Dosage: UNK
     Dates: end: 20121004
  2. LIPITOR [Suspect]
     Active Substance: ATORVASTATIN CALCIUM
     Indication: DYSLIPIDAEMIA
     Dosage: 5 MG, 1X/DAY
     Route: 048
     Dates: start: 20101004, end: 20121004
  3. FERROMIA [Concomitant]
     Active Substance: FERROUS CITRATE
     Dosage: UNK
  4. LIPITOR [Suspect]
     Active Substance: ATORVASTATIN CALCIUM
     Dosage: UNK
     Route: 048
  5. PREDONINE [Concomitant]
     Active Substance: PREDNISOLONE\PREDNISOLONE ACETATE\PREDNISOLONE SODIUM SUCCINATE
     Indication: SJOGREN^S SYNDROME
     Dosage: 5 MG, 1X/DAY
  6. AMLODIN [Concomitant]
     Active Substance: AMLODIPINE BESYLATE
     Dosage: UNK
  7. BAKTAR [Concomitant]
     Active Substance: SULFAMETHOXAZOLE\TRIMETHOPRIM
     Dosage: UNK
  8. FOSAMAC [Concomitant]
     Active Substance: ALENDRONATE SODIUM
     Dosage: UNK

REACTIONS (1)
  - Dermatomyositis [Recovering/Resolving]

NARRATIVE: CASE EVENT DATE: 201208
